FAERS Safety Report 24043028 (Version 1)
Quarter: 2024Q3

REPORT INFORMATION
  Report Type: Report from Study
  Country: IN (occurrence: None)
  Receive Date: 20240702
  Receipt Date: 20240702
  Transmission Date: 20241017
  Serious: Yes (Other)
  Sender: ASTRAZENECA
  Company Number: 2024A147671

PATIENT
  Age: 23911 Day
  Sex: Male
  Weight: 64.9 kg

DRUGS (1)
  1. IMFINZI [Suspect]
     Active Substance: DURVALUMAB
     Indication: Biliary neoplasm
     Route: 041

REACTIONS (1)
  - Haematological infection [Recovering/Resolving]

NARRATIVE: CASE EVENT DATE: 20240624
